FAERS Safety Report 21397111 (Version 1)
Quarter: 2022Q3

REPORT INFORMATION
  Report Type: Spontaneous
  Country: US (occurrence: None)
  Receive Date: 20220929
  Receipt Date: 20220929
  Transmission Date: 20221027
  Serious: Yes (Hospitalization)
  Sender: FDA-Public Use
  Company Number: None

PATIENT
  Sex: Female

DRUGS (10)
  1. MYCOPHENOLIC ACID [Suspect]
     Active Substance: MYCOPHENOLIC ACID
     Indication: Product used for unknown indication
     Dosage: 250 MG ORAL??TAKE TWO CAPSULES BY MOUTH TWICE DAILY?
     Route: 048
     Dates: start: 20150827
  2. CENTRUM TAB SILVER [Concomitant]
  3. CLONIDINE TAB [Concomitant]
  4. FISH OIL CAP [Concomitant]
  5. GLIPIIZIDE TAB [Concomitant]
  6. IPRATROPIUM/SOL ALBUTER [Concomitant]
  7. METFORMIN TAB [Concomitant]
  8. METOPROLOL TAB ER [Concomitant]
  9. PROGRAF [Concomitant]
     Active Substance: TACROLIMUS
  10. TACROLIMUS [Concomitant]
     Active Substance: TACROLIMUS

REACTIONS (1)
  - Pneumonia [None]
